FAERS Safety Report 22360181 (Version 1)
Quarter: 2023Q2

REPORT INFORMATION
  Report Type: Spontaneous
  Country: US (occurrence: US)
  Receive Date: 20230524
  Receipt Date: 20230524
  Transmission Date: 20230722
  Serious: Yes (Hospitalization, Other)
  Sender: FDA-Public Use
  Company Number: US-PFIZER INC-202300197524

PATIENT
  Age: 36 Year
  Sex: Female

DRUGS (1)
  1. BUMETANIDE [Suspect]
     Active Substance: BUMETANIDE
     Indication: Generalised oedema
     Dosage: UNK

REACTIONS (1)
  - Pancreatitis acute [Recovered/Resolved]
